FAERS Safety Report 12509043 (Version 3)
Quarter: 2016Q3

REPORT INFORMATION
  Report Type: Spontaneous
  Country: JP (occurrence: JP)
  Receive Date: 20160629
  Receipt Date: 20160816
  Transmission Date: 20161109
  Serious: Yes (Hospitalization, Other)
  Sender: FDA-Public Use
  Company Number: JP-ELI_LILLY_AND_COMPANY-JP201606008769

PATIENT
  Age: 65 Year
  Sex: Female
  Weight: 50 kg

DRUGS (6)
  1. ERBITUX [Suspect]
     Active Substance: CETUXIMAB
     Indication: GINGIVAL CANCER
     Dosage: 400 MG/M2, UNKNOWN
     Route: 042
     Dates: start: 20160317
  2. 5-FU                               /00098801/ [Concomitant]
     Active Substance: FLUOROURACIL
     Indication: GINGIVAL CANCER
     Dosage: 1000 MG/M2, UNK
     Route: 042
     Dates: start: 20160317, end: 20160317
  3. CISPLATIN. [Suspect]
     Active Substance: CISPLATIN
     Indication: GINGIVAL CANCER
     Dosage: 100 MG/M2, WEEKLY (1/W)
     Route: 042
     Dates: start: 20160317, end: 20160317
  4. ERBITUX [Suspect]
     Active Substance: CETUXIMAB
     Dosage: 250 DF, UNKNOWN
     Route: 042
  5. CISPLATIN. [Suspect]
     Active Substance: CISPLATIN
     Dosage: 50 MG/M2, WEEKLY (1/W)
     Route: 042
  6. 5-FU                               /00098801/ [Concomitant]
     Active Substance: FLUOROURACIL
     Dosage: 500 MG/M2, WEEKLY (1/W)
     Route: 042

REACTIONS (1)
  - Embolism venous [Recovering/Resolving]

NARRATIVE: CASE EVENT DATE: 20160617
